FAERS Safety Report 10533537 (Version 2)
Quarter: 2014Q4

REPORT INFORMATION
  Report Type: Spontaneous
  Country: US (occurrence: US)
  Receive Date: 20141022
  Receipt Date: 20141022
  Transmission Date: 20150529
  Serious: Yes (Hospitalization, Other)
  Sender: FDA-Public Use
  Company Number: US-ENDO PHARMACEUTICALS INC.-OPCR20140178

PATIENT
  Age: 32 Year
  Sex: Female
  Weight: 72.64 kg

DRUGS (6)
  1. CELEXA [Concomitant]
     Active Substance: CITALOPRAM HYDROBROMIDE
  2. OPANA ER [Suspect]
     Active Substance: OXYMORPHONE HYDROCHLORIDE
     Indication: DRUG ABUSE
     Dosage: UNK
  3. OPANA ER [Suspect]
     Active Substance: OXYMORPHONE HYDROCHLORIDE
     Indication: PAIN
  4. VITAMIN D ORAL [Concomitant]
  5. SYNTHROID [Concomitant]
     Active Substance: LEVOTHYROXINE SODIUM
  6. PROVENTIL [Concomitant]
     Active Substance: ALBUTEROL

REACTIONS (9)
  - Wrong technique in drug usage process [Unknown]
  - Thrombophlebitis septic [Not Recovered/Not Resolved]
  - Hypotension [Unknown]
  - Cellulitis [Unknown]
  - Incorrect route of drug administration [Unknown]
  - Sepsis [Recovered/Resolved]
  - Intentional product misuse [Unknown]
  - Myofascial pain syndrome [Unknown]
  - Drug abuse [Unknown]

NARRATIVE: CASE EVENT DATE: 201406
